FAERS Safety Report 8455073-6 (Version None)
Quarter: 2012Q2

REPORT INFORMATION
  Report Type: 
  Country: None (occurrence: None)
  Receive Date: 20120615
  Receipt Date: 20120615
  Transmission Date: 20120825
  Serious: Yes (Disabling)
  Sender: FDA-Public Use
  Company Number: None

PATIENT
  Sex: Female
  Weight: 84.8226 kg

DRUGS (2)
  1. TOPIRAMATE [Suspect]
     Indication: MIGRAINE
     Dosage: 25 MG X2 / DAY
     Dates: start: 20111012
  2. TOPIRAMATE [Suspect]
     Indication: MIGRAINE
     Dosage: 25 MG X2 / DAY
     Dates: start: 20111014, end: 20111015

REACTIONS (6)
  - HYPERSENSITIVITY [None]
  - DYSPHEMIA [None]
  - TREMOR [None]
  - PAIN [None]
  - INSOMNIA [None]
  - BALANCE DISORDER [None]
